FAERS Safety Report 22198040 (Version 1)
Quarter: 2023Q2

REPORT INFORMATION
  Report Type: Spontaneous
  Country: US (occurrence: US)
  Receive Date: 20230411
  Receipt Date: 20230411
  Transmission Date: 20230721
  Serious: No
  Sender: FDA-Public Use
  Company Number: US-PFIZER INC-202300146018

PATIENT
  Age: 44 Year
  Sex: Female
  Weight: 113.4 kg

DRUGS (4)
  1. VISTARIL [Suspect]
     Active Substance: HYDROXYZINE PAMOATE
     Indication: Anxiety
     Dosage: 25 MG, AS NEEDED
     Dates: start: 202006
  2. VISTARIL [Suspect]
     Active Substance: HYDROXYZINE PAMOATE
     Indication: Bipolar disorder
  3. GABAPENTIN [Concomitant]
     Active Substance: GABAPENTIN
     Indication: Fibromyalgia
     Dosage: 600 MG, 4X/DAY
  4. ACETAMINOPHEN\HYDROCODONE [Concomitant]
     Active Substance: ACETAMINOPHEN\HYDROCODONE
     Indication: Fibromyalgia
     Dosage: UNK, 4X/DAY (7.5/325T)

REACTIONS (2)
  - Therapeutic response unexpected [Unknown]
  - Expired product administered [Unknown]
